FAERS Safety Report 11632874 (Version 1)
Quarter: 2015Q4

REPORT INFORMATION
  Report Type: Spontaneous
  Country: US (occurrence: US)
  Receive Date: 20151015
  Receipt Date: 20151015
  Transmission Date: 20160304
  Serious: Yes (Other)
  Sender: FDA-Public Use
  Company Number: US-BAYER-2015-442415

PATIENT
  Age: 74 Year
  Sex: Male
  Weight: 126.98 kg

DRUGS (17)
  1. FINASTERIDE. [Concomitant]
     Active Substance: FINASTERIDE
  2. METAMUCIL [Concomitant]
     Active Substance: PLANTAGO SEED
  3. VITAMIN B12 [Concomitant]
     Active Substance: CYANOCOBALAMIN
  4. CLOPIDOGREL [Concomitant]
     Active Substance: CLOPIDOGREL BISULFATE
  5. NITRO [Concomitant]
     Active Substance: NITROGLYCERIN
  6. INDERAL [Concomitant]
     Active Substance: PROPRANOLOL HYDROCHLORIDE
  7. FUROSEMIDE. [Concomitant]
     Active Substance: FUROSEMIDE
  8. PRAVASTATIN [Concomitant]
     Active Substance: PRAVASTATIN\PRAVASTATIN SODIUM
  9. METFORMIN [Concomitant]
     Active Substance: METFORMIN HYDROCHLORIDE
  10. LANTUS [Concomitant]
     Active Substance: INSULIN GLARGINE
  11. MIRALAX [Suspect]
     Active Substance: POLYETHYLENE GLYCOL 3350
     Dosage: 1 DF, QD
     Route: 048
     Dates: start: 201509
  12. LANOXIN [Concomitant]
     Active Substance: DIGOXIN
  13. METOPROLOL [Concomitant]
     Active Substance: METOPROLOL
  14. MIRALAX [Suspect]
     Active Substance: POLYETHYLENE GLYCOL 3350
     Dosage: UNK
     Dates: start: 2009
  15. LISINOPRIL. [Concomitant]
     Active Substance: LISINOPRIL
  16. TAMSULOSIN [Concomitant]
     Active Substance: TAMSULOSIN
  17. HUMALOG [Concomitant]
     Active Substance: INSULIN LISPRO

REACTIONS (2)
  - Ulcer haemorrhage [None]
  - Product use issue [None]

NARRATIVE: CASE EVENT DATE: 201509
